FAERS Safety Report 24659899 (Version 1)
Quarter: 2024Q4

REPORT INFORMATION
  Report Type: Spontaneous
  Country: FR (occurrence: FR)
  Receive Date: 20241125
  Receipt Date: 20241125
  Transmission Date: 20250115
  Serious: Yes (Other)
  Sender: FRESENIUS KABI
  Company Number: None

PATIENT
  Age: 24 Year
  Sex: Male
  Weight: 96 kg

DRUGS (4)
  1. PROPOFOL [Suspect]
     Active Substance: PROPOFOL
     Indication: Abdominoplasty
     Dosage: TIME OF THERAPY START DATE: 0923
     Route: 042
     Dates: end: 20241105
  2. TRACRIUM [Suspect]
     Active Substance: ATRACURIUM BESYLATE
     Indication: Abdominoplasty
     Route: 042
     Dates: start: 20241105, end: 20241105
  3. SUFENTANIL [Concomitant]
     Active Substance: SUFENTANIL
     Indication: Abdominoplasty
     Route: 042
     Dates: start: 20241105, end: 20241105
  4. KETAMINE [Concomitant]
     Active Substance: KETAMINE
     Indication: Abdominoplasty
     Route: 042
     Dates: start: 20241105, end: 20241105

REACTIONS (1)
  - Anaphylactic shock [Recovered/Resolved]

NARRATIVE: CASE EVENT DATE: 20241105
